FAERS Safety Report 4418105-8 (Version None)
Quarter: 2004Q3

REPORT INFORMATION
  Report Type: 
  Country: None (occurrence: None)
  Receive Date: 20040805
  Receipt Date: 20040805
  Transmission Date: 20050211
  Serious: Yes (Disabling)
  Sender: FDA-Public Use
  Company Number: None

PATIENT
  Age: 30 Year
  Sex: Female
  Weight: 60.3284 kg

DRUGS (1)
  1. PROMETHAZINE [Suspect]
     Indication: NAUSEA
     Dosage: 12.5 MG IV X 1
     Route: 042
     Dates: start: 20040712

REACTIONS (5)
  - ACTIVITIES OF DAILY LIVING IMPAIRED [None]
  - INFUSION SITE BURNING [None]
  - MOVEMENT DISORDER [None]
  - PAIN IN EXTREMITY [None]
  - PARAESTHESIA [None]
